FAERS Safety Report 14456527 (Version 7)
Quarter: 2018Q3

REPORT INFORMATION
  Report Type: Report from Study
  Country: FR (occurrence: FR)
  Receive Date: 20180130
  Receipt Date: 20180903
  Transmission Date: 20181010
  Serious: Yes (Death, Life-Threatening, Hospitalization, Other)
  Sender: FDA-Public Use
  Company Number: FR-BRISTOL-MYERS SQUIBB COMPANY-BMS-2017-080099

PATIENT
  Age: 76 Year
  Sex: Male

DRUGS (1)
  1. NIVOLUMAB [Suspect]
     Active Substance: NIVOLUMAB
     Indication: LUNG NEOPLASM MALIGNANT
     Dosage: 3 MG/KG, 15 DAYS
     Route: 042
     Dates: start: 20170713, end: 20171005

REACTIONS (22)
  - Respiratory failure [Fatal]
  - Motor dysfunction [Fatal]
  - Pyrexia [Recovered/Resolved]
  - Hypoxia [Fatal]
  - Malignant neoplasm progression [Fatal]
  - Metastases to bone [Not Recovered/Not Resolved]
  - Hyperkalaemia [Fatal]
  - Constipation [Recovered/Resolved]
  - Bronchitis [Recovered/Resolved]
  - Cardiac failure [Fatal]
  - Respiratory distress [Fatal]
  - Musculoskeletal chest pain [Recovered/Resolved]
  - Back pain [Recovered/Resolved]
  - Decreased appetite [Recovered/Resolved]
  - Asthenia [Recovered/Resolved]
  - Bone pain [Not Recovered/Not Resolved]
  - Acute pulmonary oedema [Fatal]
  - Hyponatraemia [Fatal]
  - Haemoptysis [Recovered/Resolved]
  - Hypotension [Recovered/Resolved]
  - Weight decreased [Unknown]
  - Renal failure [Fatal]

NARRATIVE: CASE EVENT DATE: 201707
